FAERS Safety Report 6156219-5 (Version None)
Quarter: 2009Q2

REPORT INFORMATION
  Report Type: 
  Country: None (occurrence: None)
  Receive Date: 20090415
  Receipt Date: 20090408
  Transmission Date: 20091009
  Serious: No
  Sender: FDA-Public Use
  Company Number: US-B.I. PHARMACEUTICALS,INC./RIDGEFIELD-2009-BP-04384BP

PATIENT
  Sex: Female

DRUGS (12)
  1. SPIRIVA [Suspect]
     Indication: CHRONIC OBSTRUCTIVE PULMONARY DISEASE
     Dosage: 18MG
     Route: 055
     Dates: start: 20090401, end: 20090401
  2. SPIRIVA [Suspect]
     Indication: BRONCHIECTASIS
  3. XOPENEX [Suspect]
     Indication: CHRONIC OBSTRUCTIVE PULMONARY DISEASE
     Dates: start: 20040101
  4. XOPENEX [Suspect]
     Indication: BRONCHIECTASIS
  5. LOPRESSOR [Concomitant]
     Indication: ATRIAL FIBRILLATION
  6. LOPRESSOR [Concomitant]
     Indication: HEART RATE INCREASED
  7. COUMADIN [Concomitant]
     Indication: ATRIAL FIBRILLATION
  8. COUMADIN [Concomitant]
     Indication: HEART RATE INCREASED
  9. DILTIAZEM [Concomitant]
     Indication: ATRIAL FIBRILLATION
  10. DILTIAZEM [Concomitant]
     Indication: HEART RATE INCREASED
  11. RYTHMOL [Concomitant]
     Indication: ATRIAL FIBRILLATION
  12. RYTHMOL [Concomitant]
     Indication: HEART RATE INCREASED

REACTIONS (1)
  - DRUG INEFFECTIVE [None]
